FAERS Safety Report 7308516-5 (Version None)
Quarter: 2011Q1

REPORT INFORMATION
  Report Type: 
  Country: None (occurrence: None)
  Receive Date: 20110223
  Receipt Date: 20101220
  Transmission Date: 20110831
  Serious: Yes (Hospitalization, Other)
  Sender: FDA-Public Use
  Company Number: US-BAYER-201026244NA

PATIENT
  Sex: Female
  Weight: 132.93 kg

DRUGS (3)
  1. XANAX [Concomitant]
     Dosage: 0.5 MG, HS
     Route: 048
  2. DYAZIDE [Concomitant]
     Dosage: UNK
     Route: 048
  3. OCELLA [Suspect]
     Indication: PRODUCT USED FOR UNKNOWN INDICATION
     Route: 048

REACTIONS (10)
  - ABDOMINAL PAIN UPPER [None]
  - VOMITING [None]
  - CHOLECYSTITIS CHRONIC [None]
  - PAIN [None]
  - BILIARY TRACT DISORDER [None]
  - CHOLELITHIASIS [None]
  - GALLBLADDER DISORDER [None]
  - NAUSEA [None]
  - GALLBLADDER CHOLESTEROLOSIS [None]
  - INJURY [None]
